FAERS Safety Report 24998170 (Version 1)
Quarter: 2025Q1

REPORT INFORMATION
  Report Type: Spontaneous
  Country: US (occurrence: US)
  Receive Date: 20250222
  Receipt Date: 20250222
  Transmission Date: 20250408
  Serious: No
  Sender: SANOFI AVENTIS
  Company Number: US-SA-2025SA043527

PATIENT
  Age: 66 Year
  Sex: Male

DRUGS (14)
  1. DUPIXENT [Suspect]
     Active Substance: DUPILUMAB
     Indication: Asthma
     Dosage: 300 MG, QOW
     Route: 058
     Dates: start: 202412
  2. TRAZODONE HCL [Concomitant]
     Active Substance: TRAZODONE HYDROCHLORIDE
  3. ALBUTEROL SULFATE [Concomitant]
     Active Substance: ALBUTEROL SULFATE
  4. ALPRAZOLAM [Concomitant]
     Active Substance: ALPRAZOLAM
  5. DAPAGLIFLOZIN [Concomitant]
     Active Substance: DAPAGLIFLOZIN
  6. ESOMEPRAZOLE [Concomitant]
     Active Substance: ESOMEPRAZOLE
  7. FLUTICASONE [Concomitant]
     Active Substance: FLUTICASONE
  8. HYDROXYZINE [Concomitant]
     Active Substance: HYDROXYZINE HYDROCHLORIDE
  9. IPRATROPIUM [Concomitant]
     Active Substance: IPRATROPIUM
  10. LEVOCETIRIZINE [Concomitant]
     Active Substance: LEVOCETIRIZINE
  11. MELOXICAM [Concomitant]
     Active Substance: MELOXICAM
  12. NIFEDIPINE [Concomitant]
     Active Substance: NIFEDIPINE
  13. OXYCODONE HYDROCHLORIDE [Concomitant]
     Active Substance: OXYCODONE HYDROCHLORIDE
  14. OZEMPIC [Concomitant]
     Active Substance: SEMAGLUTIDE

REACTIONS (3)
  - Dyspnoea [Not Recovered/Not Resolved]
  - Oropharyngeal pain [Not Recovered/Not Resolved]
  - Asthma [Not Recovered/Not Resolved]

NARRATIVE: CASE EVENT DATE: 20241201
